FAERS Safety Report 13164206 (Version 9)
Quarter: 2018Q3

REPORT INFORMATION
  Report Type: Report from Study
  Country: CA (occurrence: CA)
  Receive Date: 20170130
  Receipt Date: 20180802
  Transmission Date: 20181010
  Serious: Yes (Hospitalization, Other)
  Sender: FDA-Public Use
  Company Number: CA-SA-2016SA231522

PATIENT
  Age: 22 Year
  Sex: Male

DRUGS (7)
  1. ALEMTUZUMAB [Suspect]
     Active Substance: ALEMTUZUMAB
     Dosage: 12 MG,QD
     Route: 041
     Dates: start: 20161212, end: 20161216
  2. METHYLPREDNISOLONE. [Concomitant]
     Active Substance: METHYLPREDNISOLONE
     Indication: PREMEDICATION
     Dosage: 1 G,UNK
     Route: 042
     Dates: start: 20161212, end: 20161215
  3. BENADRYL [Concomitant]
     Active Substance: DIPHENHYDRAMINE HYDROCHLORIDE
     Indication: PREMEDICATION
     Dosage: 25 MG,UNK
     Route: 048
     Dates: start: 20161212, end: 20161216
  4. GRAVOL [Concomitant]
     Active Substance: DIMENHYDRINATE
     Indication: PREMEDICATION
     Dosage: 50 MG,UNK
     Route: 048
     Dates: start: 20161212, end: 20161216
  5. RANITIDINE. [Concomitant]
     Active Substance: RANITIDINE
     Indication: PREMEDICATION
     Dosage: 150 MG,UNK
     Route: 048
     Dates: start: 20161212, end: 20161216
  6. ACETAMINOPHEN. [Concomitant]
     Active Substance: ACETAMINOPHEN
     Indication: PREMEDICATION
     Dosage: 1 G,UNK
     Route: 048
     Dates: start: 20161212, end: 20161216
  7. ACICLOVIR [Concomitant]
     Active Substance: ACYCLOVIR
     Indication: PREMEDICATION
     Dosage: 200 MG,BID
     Route: 048
     Dates: start: 20161212, end: 20170114

REACTIONS (17)
  - Haemoglobin decreased [Recovered/Resolved]
  - Bacterial test [Unknown]
  - Red blood cell count decreased [Not Recovered/Not Resolved]
  - White blood cells urine positive [Unknown]
  - Dysarthria [Recovering/Resolving]
  - Haematocrit decreased [Recovered/Resolved]
  - Multiple sclerosis relapse [Unknown]
  - Urine analysis abnormal [Unknown]
  - Lymphocyte count decreased [Not Recovered/Not Resolved]
  - Optic neuritis [Recovered/Resolved]
  - Neuromyelitis optica spectrum disorder [Unknown]
  - Musculoskeletal disorder [Recovered/Resolved]
  - Urine abnormality [Recovered/Resolved]
  - Insomnia [Recovered/Resolved]
  - Eye disorder [Recovered/Resolved]
  - Gait disturbance [Recovering/Resolving]
  - Visual impairment [Recovered/Resolved]

NARRATIVE: CASE EVENT DATE: 20161212
